FAERS Safety Report 21694779 (Version 1)
Quarter: 2022Q4

REPORT INFORMATION
  Report Type: Report from Study
  Country: CA (occurrence: CA)
  Receive Date: 20221207
  Receipt Date: 20221207
  Transmission Date: 20230113
  Serious: Yes (Other)
  Sender: FDA-Public Use
  Company Number: CA-JNJFOC-20221154644

PATIENT
  Age: 59 Year
  Sex: Male
  Weight: 109 kg

DRUGS (1)
  1. REMICADE [Suspect]
     Active Substance: INFLIXIMAB
     Indication: Crohn^s disease
     Route: 042
     Dates: start: 20221107

REACTIONS (2)
  - Neoplasm prostate [Unknown]
  - Malaise [Unknown]

NARRATIVE: CASE EVENT DATE: 20221101
